FAERS Safety Report 25591089 (Version 1)
Quarter: 2025Q3

REPORT INFORMATION
  Report Type: Spontaneous
  Country: US (occurrence: None)
  Receive Date: 20250722
  Receipt Date: 20250722
  Transmission Date: 20251021
  Serious: Yes (Hospitalization)
  Sender: FDA-CTU
  Company Number: None

PATIENT
  Age: 40 Year
  Sex: Male
  Weight: 15 kg

DRUGS (8)
  1. LENVATINIB MESYLATE [Suspect]
     Active Substance: LENVATINIB MESYLATE
     Dates: end: 20250711
  2. PEMBROLIZUMAB [Suspect]
     Active Substance: PEMBROLIZUMAB
     Dates: end: 20250624
  3. Arnlodipine [Concomitant]
  4. LOSARTAN [Concomitant]
     Active Substance: LOSARTAN
  5. ONDANSETRON [Concomitant]
     Active Substance: ONDANSETRON
  6. GABAPENTIN [Concomitant]
     Active Substance: GABAPENTIN
  7. MECLIZINE [Concomitant]
     Active Substance: MECLIZINE HYDROCHLORIDE
  8. METOPROLOL SUCCINATE [Concomitant]
     Active Substance: METOPROLOL SUCCINATE

REACTIONS (3)
  - Headache [None]
  - Nausea [None]
  - Otorrhoea [None]

NARRATIVE: CASE EVENT DATE: 20250718
